FAERS Safety Report 9259389 (Version 2)
Quarter: 2013Q2

REPORT INFORMATION
  Report Type: Report from Study
  Country: DE (occurrence: DE)
  Receive Date: 20130427
  Receipt Date: 20130505
  Transmission Date: 20140414
  Serious: Yes (Hospitalization)
  Sender: FDA-Public Use
  Company Number: DE-US-EMD SERONO, INC.-7206529

PATIENT
  Sex: Male
  Weight: 77 kg

DRUGS (6)
  1. SAIZEN [Suspect]
     Indication: GROWTH HORMONE DEFICIENCY
     Route: 058
  2. SAIZEN [Suspect]
     Route: 058
  3. L-THYROXIN [Concomitant]
     Indication: BLOOD THYROID STIMULATING HORMONE DECREASED
     Route: 048
     Dates: start: 19991115
  4. MINIRIN                            /00361902/ [Concomitant]
     Indication: BLOOD ANTIDIURETIC HORMONE DECREASED
     Dates: start: 19991115
  5. HYDROCORTISONE                     /00028604/ [Concomitant]
     Indication: BLOOD CORTICOTROPHIN DECREASED
     Dates: start: 19991115
  6. TESTOSTERONE [Concomitant]
     Indication: HYPOPITUITARISM
     Dates: start: 19991115

REACTIONS (2)
  - Appendicitis [Recovered/Resolved]
  - Peritonitis [Recovered/Resolved]
